FAERS Safety Report 21751326 (Version 2)
Quarter: 2022Q4

REPORT INFORMATION
  Report Type: Spontaneous
  Country: US (occurrence: US)
  Receive Date: 20221220
  Receipt Date: 20221229
  Transmission Date: 20230113
  Serious: Yes (Hospitalization)
  Sender: FDA-Public Use
  Company Number: US-AMNEAL PHARMACEUTICALS-2022-AMRX-04014

PATIENT
  Age: 76 Year
  Sex: Male

DRUGS (1)
  1. RYTARY [Suspect]
     Active Substance: CARBIDOPA\LEVODOPA
     Indication: Product used for unknown indication
     Dosage: 2 CAPSULES, (61.25-245MG) 4 /DAY
     Route: 048

REACTIONS (4)
  - Adverse event [Unknown]
  - Unresponsive to stimuli [Unknown]
  - Gait inability [Unknown]
  - Incoherent [Unknown]

NARRATIVE: CASE EVENT DATE: 20221125
